FAERS Safety Report 6161311-5 (Version None)
Quarter: 2009Q2

REPORT INFORMATION
  Report Type: 
  Country: None (occurrence: None)
  Receive Date: 20090421
  Receipt Date: 20090407
  Transmission Date: 20091009
  Serious: Yes (Hospitalization)
  Sender: FDA-Public Use
  Company Number: US-JNJFOC-20090204081

PATIENT
  Sex: Female
  Weight: 67.59 kg

DRUGS (13)
  1. REMICADE [Suspect]
     Route: 042
  2. REMICADE [Suspect]
     Indication: COLITIS ULCERATIVE
     Route: 042
  3. FLAGYL [Concomitant]
     Indication: BAND NEUTROPHIL COUNT INCREASED
  4. LEVAQUIN [Concomitant]
     Indication: BAND NEUTROPHIL COUNT INCREASED
  5. SOLU-MEDROL [Concomitant]
     Indication: COLITIS ULCERATIVE
  6. ANTI NAUSEA [Concomitant]
  7. LEXAPRO [Concomitant]
     Indication: DEPRESSION
     Route: 048
  8. WELLBUTRIN [Concomitant]
     Indication: DEPRESSION
  9. PREDNISONE [Concomitant]
  10. PREDNISONE [Concomitant]
     Indication: COLITIS ULCERATIVE
  11. CANASA [Concomitant]
     Indication: COLITIS ULCERATIVE
  12. ANTI-COAGULANT THERAPY [Concomitant]
     Indication: THROMBOSIS PROPHYLAXIS
  13. MULTI-VITAMIN [Concomitant]

REACTIONS (11)
  - ANXIETY [None]
  - DEEP VEIN THROMBOSIS [None]
  - DRY MOUTH [None]
  - FATIGUE [None]
  - INFLUENZA LIKE ILLNESS [None]
  - OEDEMA PERIPHERAL [None]
  - ORAL PAIN [None]
  - PULMONARY EMBOLISM [None]
  - RETCHING [None]
  - SURGERY [None]
  - WHITE BLOOD CELL COUNT INCREASED [None]
